FAERS Safety Report 6674828-1 (Version None)
Quarter: 2010Q1

REPORT INFORMATION
  Report Type: 
  Country: None (occurrence: None)
  Receive Date: 20100331
  Receipt Date: 20091229
  Transmission Date: 20100710
  Serious: Yes (Other)
  Sender: FDA-Public Use
  Company Number: 2009316203

PATIENT
  Age: 60 Year
  Sex: Female
  Weight: 55.3 kg

DRUGS (2)
  1. SUTENT [Suspect]
     Indication: RENAL CANCER
     Dosage: ORAL
     Route: 048
     Dates: start: 20091210
  2. AMLODIPINE BESYLATE [Concomitant]

REACTIONS (2)
  - HAEMATOCHEZIA [None]
  - YELLOW SKIN [None]
